FAERS Safety Report 10436681 (Version 1)
Quarter: 2014Q3

REPORT INFORMATION
  Report Type: Spontaneous
  Country: US (occurrence: US)
  Receive Date: 20140908
  Receipt Date: 20140908
  Transmission Date: 20150326
  Serious: No
  Sender: FDA-Public Use
  Company Number: US-BRISTOL-MYERS SQUIBB COMPANY-20778049

PATIENT
  Sex: Male

DRUGS (3)
  1. ABILIFY [Suspect]
     Active Substance: ARIPIPRAZOLE
     Indication: OBSESSIVE-COMPULSIVE DISORDER
  2. FLUVOXAMINE [Concomitant]
     Active Substance: FLUVOXAMINE
  3. ACYCLOVIR. [Concomitant]
     Active Substance: ACYCLOVIR

REACTIONS (6)
  - Skin disorder [Not Recovered/Not Resolved]
  - Oral mucosal blistering [Not Recovered/Not Resolved]
  - Chills [Recovered/Resolved]
  - Influenza like illness [Unknown]
  - Myalgia [Unknown]
  - Herpes virus infection [Unknown]
